FAERS Safety Report 18543412 (Version 1)
Quarter: 2020Q4

REPORT INFORMATION
  Report Type: Spontaneous
  Country: GB (occurrence: GB)
  Receive Date: 20201125
  Receipt Date: 20201125
  Transmission Date: 20210114
  Serious: Yes (Other)
  Sender: FDA-Public Use
  Company Number: GB-TEVA-2020-GB-1851464

PATIENT
  Age: 72 Year
  Sex: Female
  Weight: 78 kg

DRUGS (12)
  1. MONTELUKAST [Concomitant]
     Active Substance: MONTELUKAST SODIUM
     Dosage: 1 DOSAGE FORMS DAILY; AT NIGHT
     Dates: start: 20160519
  2. AMITRIPTYLINE HYDROCHLORIDE. [Concomitant]
     Active Substance: AMITRIPTYLINE HYDROCHLORIDE
     Dosage: 2 DOSAGE FORMS DAILY; EACH NIGHT
     Dates: start: 20200615
  3. SALBUTAMOL [Concomitant]
     Active Substance: ALBUTEROL
     Dosage: 2DOSAGEFORM
     Route: 055
     Dates: start: 20180209
  4. SIMVASTATIN. [Concomitant]
     Active Substance: SIMVASTATIN
     Dosage: 1DOSAGEFORM
     Dates: start: 20150324, end: 20200930
  5. ROSUVASTATIN. [Suspect]
     Active Substance: ROSUVASTATIN
     Dosage: 5MILLIGRAM
     Dates: start: 20200930
  6. CLENIL MODULITE [Concomitant]
     Active Substance: BECLOMETHASONE DIPROPIONATE
     Dosage: 4DOSAGEFORM
     Route: 055
     Dates: start: 20181214
  7. NASONEX [Concomitant]
     Active Substance: MOMETASONE FUROATE
     Dosage: 2DOSAGEFORM:SPRAY
     Dates: start: 20150324
  8. LEVOTHYROXINE. [Concomitant]
     Active Substance: LEVOTHYROXINE
     Dosage: 2 DOSAGE FORMS DAILY; EACH MORNING
     Dates: start: 20200615
  9. TRAMULIEF SR [Concomitant]
     Dosage: 2DOSAGEFORM
     Dates: start: 20160715
  10. LOSARTAN. [Concomitant]
     Active Substance: LOSARTAN
     Dosage: 1DOSAGEFORM
     Dates: start: 20200615
  11. TRAMADOL. [Concomitant]
     Active Substance: TRAMADOL
     Dosage: 1-2 FOUR TIMES DAILY
     Dates: start: 20160714
  12. AMLODIPINE [Concomitant]
     Active Substance: AMLODIPINE BESYLATE
     Dosage: 1DOSAGEFORM
     Dates: start: 20190116, end: 20200930

REACTIONS (2)
  - Dermatitis allergic [Recovered/Resolved]
  - Arthralgia [Unknown]

NARRATIVE: CASE EVENT DATE: 20201027
